FAERS Safety Report 22095797 (Version 1)
Quarter: 2023Q1

REPORT INFORMATION
  Report Type: Spontaneous
  Country: SA (occurrence: US)
  Receive Date: 20230314
  Receipt Date: 20230314
  Transmission Date: 20230418
  Serious: No
  Sender: FDA-Public Use
  Company Number: SA-009507513-2302USA008092

PATIENT
  Age: 46 Year
  Sex: Male

DRUGS (2)
  1. KEYTRUDA [Suspect]
     Active Substance: PEMBROLIZUMAB
     Indication: Colon cancer metastatic
  2. REGORAFENIB [Concomitant]
     Active Substance: REGORAFENIB
     Indication: Colon cancer metastatic

REACTIONS (1)
  - Off label use [Unknown]
